FAERS Safety Report 15844613 (Version 1)
Quarter: 2019Q1

REPORT INFORMATION
  Report Type: Spontaneous
  Country: JP (occurrence: JP)
  Receive Date: 20190118
  Receipt Date: 20190118
  Transmission Date: 20190417
  Serious: Yes (Hospitalization)
  Sender: FDA-Public Use
  Company Number: JP-ALLERGAN-1902131US

PATIENT
  Age: 81 Year
  Sex: Female

DRUGS (5)
  1. LINACLOTIDE - BP [Suspect]
     Active Substance: LINACLOTIDE
     Dosage: 0.5 MG, QD (BEFORE MEAL)
     Route: 048
     Dates: start: 20180118
  2. MAGMITT [Concomitant]
     Active Substance: MAGNESIUM OXIDE
     Indication: PRODUCT USED FOR UNKNOWN INDICATION
     Dosage: UNK
     Route: 048
     Dates: start: 20180201, end: 20180303
  3. LINACLOTIDE - BP [Suspect]
     Active Substance: LINACLOTIDE
     Indication: IRRITABLE BOWEL SYNDROME
     Dosage: 0.5 MG, QD
     Route: 048
     Dates: start: 20180712
  4. AMITIZA [Concomitant]
     Active Substance: LUBIPROSTONE
     Indication: PRODUCT USED FOR UNKNOWN INDICATION
     Dosage: UNK
     Route: 065
     Dates: end: 20180127
  5. LINACLOTIDE - BP [Suspect]
     Active Substance: LINACLOTIDE
     Dosage: 0.25 MG, QD
     Route: 048
     Dates: start: 20180509

REACTIONS (1)
  - Joint dislocation [Unknown]

NARRATIVE: CASE EVENT DATE: 2018
